FAERS Safety Report 21161898 (Version 1)
Quarter: 2022Q3

REPORT INFORMATION
  Report Type: Spontaneous
  Country: US (occurrence: None)
  Receive Date: 20220802
  Receipt Date: 20220802
  Transmission Date: 20221027
  Serious: No
  Sender: FDA-Public Use
  Company Number: None

PATIENT
  Age: 60 Year
  Sex: Female
  Weight: 76.5 kg

DRUGS (4)
  1. IBANDRONATE SODIUM [Suspect]
     Active Substance: IBANDRONATE SODIUM
     Indication: Osteoporosis
     Route: 048
  2. VITAMIN D [Concomitant]
     Active Substance: VITAMIN D NOS
  3. FENOFIBRATE [Concomitant]
     Active Substance: FENOFIBRATE
  4. METOPROLOL [Concomitant]
     Active Substance: METOPROLOL

REACTIONS (5)
  - Back pain [None]
  - Chest pain [None]
  - Arthralgia [None]
  - Arthralgia [None]
  - Abdominal pain upper [None]

NARRATIVE: CASE EVENT DATE: 20220731
